FAERS Safety Report 24847222 (Version 3)
Quarter: 2025Q2

REPORT INFORMATION
  Report Type: Other
  Country: US (occurrence: US)
  Receive Date: 20250116
  Receipt Date: 20250429
  Transmission Date: 20250716
  Serious: No
  Sender: TRAVERE THERAPEUTICS
  Company Number: US-TRAVERE-2024TVT01314

PATIENT
  Sex: Male

DRUGS (6)
  1. FILSPARI [Suspect]
     Active Substance: SPARSENTAN
     Indication: IgA nephropathy
     Route: 048
     Dates: start: 20241122, end: 20241212
  2. FILSPARI [Suspect]
     Active Substance: SPARSENTAN
     Dosage: BREAKING THE 400MG DOSE IN HALF
     Route: 048
     Dates: start: 20241212, end: 20250102
  3. FILSPARI [Suspect]
     Active Substance: SPARSENTAN
     Route: 048
     Dates: start: 20250103, end: 20250110
  4. CELLCEPT [Concomitant]
     Active Substance: MYCOPHENOLATE MOFETIL
  5. PROGRAF [Concomitant]
     Active Substance: TACROLIMUS
  6. GABAPENTIN [Concomitant]
     Active Substance: GABAPENTIN

REACTIONS (3)
  - Drug dose titration not performed [Unknown]
  - Alopecia [Recovered/Resolved]
  - Wrong technique in product usage process [Unknown]
